FAERS Safety Report 5275665-5 (Version None)
Quarter: 2007Q1

REPORT INFORMATION
  Report Type: 
  Country: None (occurrence: None)
  Receive Date: 20070326
  Receipt Date: 20070319
  Transmission Date: 20070707
  Serious: Yes (Hospitalization)
  Sender: FDA-Public Use
  Company Number: 2007CG00455

PATIENT
  Age: 60 Year
  Sex: Female
  Weight: 60 kg

DRUGS (4)
  1. CARBOCAINE [Suspect]
     Indication: ANAESTHESIA
     Route: 053
     Dates: start: 20061017, end: 20061017
  2. CEFACIDAL [Suspect]
     Route: 042
     Dates: start: 20061017, end: 20061017
  3. GENTAMICIN [Concomitant]
     Route: 042
     Dates: start: 20061017, end: 20061017
  4. DI-ANTALVIC [Concomitant]
     Route: 048
     Dates: start: 20061017, end: 20061021

REACTIONS (2)
  - HEPATITIS [None]
  - OVERDOSE [None]
